FAERS Safety Report 8785727 (Version 4)
Quarter: 2012Q4

REPORT INFORMATION
  Report Type: 
  Country: US (occurrence: US)
  Receive Date: 20120914
  Receipt Date: 20121228
  Transmission Date: 20130627
  Serious: Yes (Hospitalization, Other)
  Sender: FDA-Public Use
  Company Number: US-009507513-1201USA00888

PATIENT

DRUGS (9)
  1. FOSAMAX [Suspect]
     Indication: OSTEOPOROSIS
     Dosage: 70 mg, qw
     Route: 048
     Dates: start: 20020716, end: 200806
  2. FOSAMAX [Suspect]
     Indication: OSTEOPOROSIS
     Dosage: 70 mg, qw
     Route: 048
  3. VITAMINS (UNSPECIFIED) [Concomitant]
     Dosage: UNK
     Dates: start: 1985
  4. CYANOCOBALAMIN [Concomitant]
     Dosage: 1000 Microgram, qd
     Dates: start: 1985
  5. CHOLECALCIFEROL [Concomitant]
     Dosage: 4000 IU, qd
     Dates: start: 1985
  6. VITAMIN E [Concomitant]
     Dosage: UNK
     Dates: start: 1985
  7. CALCIUM (UNSPECIFIED) [Concomitant]
     Dosage: 500 mg, tid
     Dates: start: 1985
  8. PRILOSEC [Concomitant]
     Dosage: UNK
     Route: 048
     Dates: start: 1992
  9. MAGNESIUM (UNSPECIFIED) [Concomitant]
     Dosage: 400 mg, qd
     Dates: start: 1985

REACTIONS (17)
  - Femur fracture [Unknown]
  - Open reduction of fracture [Unknown]
  - Fall [Unknown]
  - Convulsion [Unknown]
  - Spinal fracture [Unknown]
  - Upper limb fracture [Unknown]
  - Shoulder operation [Unknown]
  - Knee arthroplasty [Unknown]
  - Migraine [Unknown]
  - Abdominal pain upper [Unknown]
  - Rib fracture [Unknown]
  - Diabetes mellitus [Unknown]
  - Jaw disorder [Unknown]
  - Hypertension [Unknown]
  - Blood cholesterol increased [Unknown]
  - Osteopenia [Unknown]
  - Pain in extremity [Unknown]
